FAERS Safety Report 14018723 (Version 1)
Quarter: 2017Q3

REPORT INFORMATION
  Report Type: Spontaneous
  Country: US (occurrence: US)
  Receive Date: 20170928
  Receipt Date: 20170928
  Transmission Date: 20171128
  Serious: No
  Sender: FDA-Public Use
  Company Number: None

PATIENT
  Age: 41 Year
  Sex: Female
  Weight: 76.95 kg

DRUGS (5)
  1. BIOTE (TESTOSTERONE) [Suspect]
     Active Substance: TESTOSTERONE
     Indication: BLOOD TESTOSTERONE DECREASED
     Dates: start: 20170905, end: 20170927
  2. VITAMIN D [Concomitant]
     Active Substance: CHOLECALCIFEROL
  3. WOMEN^S MULTI VITAMIN [Concomitant]
  4. CLA [Concomitant]
  5. L-CARNITINE [Concomitant]
     Active Substance: LEVOCARNITINE

REACTIONS (3)
  - Application site vesicles [None]
  - Purulence [None]
  - Wound [None]

NARRATIVE: CASE EVENT DATE: 20170927
